FAERS Safety Report 25196885 (Version 2)
Quarter: 2025Q3

REPORT INFORMATION
  Report Type: Spontaneous
  Country: EU (occurrence: EU)
  Receive Date: 20250415
  Receipt Date: 20250802
  Transmission Date: 20251021
  Serious: Yes (Death, Hospitalization)
  Sender: ALEXION PHARMACEUTICALS
  Company Number: None

PATIENT
  Age: 75 Year
  Sex: Male
  Weight: 90 kg

DRUGS (6)
  1. TICAGRELOR [Suspect]
     Active Substance: TICAGRELOR
     Indication: Prophylaxis
     Dates: start: 20250110, end: 20250320
  2. ATORVASTATIN CALCIUM [Suspect]
     Active Substance: ATORVASTATIN CALCIUM
     Indication: Prophylaxis
     Dates: start: 20250110, end: 20250318
  3. ASPIRIN [Concomitant]
     Active Substance: ASPIRIN
     Indication: Product used for unknown indication
  4. JARDIANCE [Concomitant]
     Active Substance: EMPAGLIFLOZIN
     Indication: Product used for unknown indication
  5. Metoprolol hexal z [Concomitant]
     Indication: Product used for unknown indication
  6. Zofistar [Concomitant]
     Indication: Product used for unknown indication

REACTIONS (6)
  - Jaundice [Fatal]
  - Liver injury [Fatal]
  - Renal failure [Fatal]
  - Rhabdomyolysis [Fatal]
  - Asthenia [Fatal]
  - Death [Fatal]
